FAERS Safety Report 12566363 (Version 1)
Quarter: 2016Q3

REPORT INFORMATION
  Report Type: Report from Study
  Country: CA (occurrence: CA)
  Receive Date: 20160718
  Receipt Date: 20160718
  Transmission Date: 20161109
  Serious: Yes (Hospitalization)
  Sender: FDA-Public Use
  Company Number: CA-JNJFOC-20160710824

PATIENT
  Sex: Female
  Weight: 96 kg

DRUGS (8)
  1. CIPRALEX [Concomitant]
     Active Substance: ESCITALOPRAM OXALATE
  2. REMICADE [Suspect]
     Active Substance: INFLIXIMAB
     Indication: CROHN^S DISEASE
     Route: 042
     Dates: start: 20151001
  3. TYLENOL WITH CODEINE [Concomitant]
     Active Substance: ACETAMINOPHEN\CODEINE PHOSPHATE
  4. WELLBUTRIN [Concomitant]
     Active Substance: BUPROPION HYDROCHLORIDE
  5. VESICARE [Concomitant]
     Active Substance: SOLIFENACIN SUCCINATE
  6. QUETIAPINE. [Concomitant]
     Active Substance: QUETIAPINE
  7. DOMPERIDONE [Concomitant]
     Active Substance: DOMPERIDONE
  8. ZOPLICONE [Concomitant]
     Active Substance: ZOPICLONE

REACTIONS (3)
  - Cystitis [Recovering/Resolving]
  - Spinal column stenosis [Recovering/Resolving]
  - Foot operation [Unknown]
